FAERS Safety Report 15987145 (Version 1)
Quarter: 2019Q1

REPORT INFORMATION
  Report Type: Spontaneous
  Country: DK (occurrence: DK)
  Receive Date: 20190220
  Receipt Date: 20190220
  Transmission Date: 20190418
  Serious: Yes (Other)
  Sender: FDA-Public Use
  Company Number: DK-NOVOPROD-646912

PATIENT
  Age: 80 Year
  Sex: Female

DRUGS (1)
  1. NOVOMIX [Suspect]
     Active Substance: INSULIN ASPART
     Indication: PRODUCT USED FOR UNKNOWN INDICATION
     Dosage: UNK
     Route: 065
     Dates: end: 20181212

REACTIONS (2)
  - Therapeutic response decreased [Unknown]
  - Spinal column stenosis [Unknown]
